FAERS Safety Report 10229782 (Version 2)
Quarter: 2014Q2

REPORT INFORMATION
  Report Type: Report from Study
  Country: SG (occurrence: SG)
  Receive Date: 20140611
  Receipt Date: 20140618
  Transmission Date: 20141212
  Serious: Yes (Death, Hospitalization)
  Sender: FDA-Public Use
  Company Number: PHHO2014SG008233

PATIENT
  Age: 67 Year
  Sex: Female
  Weight: 41.8 kg

DRUGS (3)
  1. LDK378 [Suspect]
     Indication: NON-SMALL CELL LUNG CANCER
     Dosage: 600 MG, QD
     Route: 048
     Dates: start: 20140219, end: 20140603
  2. AUY922 [Suspect]
     Indication: NON-SMALL CELL LUNG CANCER
     Dosage: 40 MG, QW
     Dates: start: 20140219, end: 20140528
  3. ENOXAPARIN [Concomitant]
     Indication: PULMONARY EMBOLISM

REACTIONS (1)
  - Myocardial infarction [Fatal]
